FAERS Safety Report 4871160-3 (Version None)
Quarter: 2006Q1

REPORT INFORMATION
  Report Type: 
  Country: None (occurrence: None)
  Receive Date: 20060103
  Receipt Date: 20051221
  Transmission Date: 20060701
  Serious: Yes (Hospitalization)
  Sender: FDA-Public Use
  Company Number: AU-NOVOPROD-249501

PATIENT
  Age: 60 Year
  Sex: Male
  Weight: 135 kg

DRUGS (2)
  1. ACTRAPID HM PENFILL [Suspect]
     Indication: DIABETES MELLITUS
  2. PROTAPHANE PENFILL [Suspect]
     Indication: DIABETES MELLITUS

REACTIONS (2)
  - DIABETES MELLITUS INADEQUATE CONTROL [None]
  - SKIN ULCER [None]
